FAERS Safety Report 4829355-0 (Version None)
Quarter: 2005Q4

REPORT INFORMATION
  Report Type: 
  Country: None (occurrence: None)
  Receive Date: 20051028
  Receipt Date: 20050805
  Transmission Date: 20060501
  Serious: No
  Sender: FDA-Public Use
  Company Number: COT_0173_2005

PATIENT
  Age: 38 Year
  Sex: Male
  Weight: 71.2 kg

DRUGS (16)
  1. VENTAVIS [Suspect]
     Indication: PULMONARY HYPERTENSION
     Dosage: 5 MCG VARIALE IH
     Route: 055
     Dates: start: 20050719, end: 20050805
  2. VENTAVIS [Suspect]
     Indication: PULMONARY HYPERTENSION
     Dosage: 5 MCG VARIABLE IH
     Route: 055
     Dates: start: 20050719, end: 20050805
  3. VENTAVIS [Suspect]
     Indication: PULMONARY HYPERTENSION
     Dosage: 5 MCG VARIABLE IH
     Route: 055
  4. VENTAVIS [Suspect]
     Indication: PULMONARY HYPERTENSION
     Dosage: 5 MCG VARIABLE IH
     Route: 055
  5. COREG [Concomitant]
  6. DIGOXIN [Concomitant]
  7. LASIX [Concomitant]
  8. POTASSIUM CHLORIDE [Concomitant]
  9. COUMADIN [Concomitant]
  10. ZYPREXA [Concomitant]
  11. VALPROIC ACID [Concomitant]
  12. ALTACE [Concomitant]
  13. SILDENAFIL [Concomitant]
  14. LEXAPRO [Concomitant]
  15. THORAZINE [Concomitant]
  16. COGENTIN [Concomitant]

REACTIONS (2)
  - CHEST PAIN [None]
  - HYPOAESTHESIA [None]
